FAERS Safety Report 4605060-0 (Version None)
Quarter: 2005Q1

REPORT INFORMATION
  Report Type: 
  Country: None (occurrence: None)
  Receive Date: 20050311
  Receipt Date: 20050302
  Transmission Date: 20050727
  Serious: Yes (Other)
  Sender: FDA-Public Use
  Company Number: LB-BRISTOL-MYERS SQUIBB COMPANY-12886362

PATIENT
  Age: 68 Year
  Sex: Male
  Weight: 90 kg

DRUGS (3)
  1. APROVEL TABS 150 MG [Suspect]
     Indication: INTERMITTENT CLAUDICATION
     Route: 048
     Dates: start: 20050125
  2. SUPRAX [Concomitant]
     Indication: PNEUMONIA
  3. TAVANIC [Concomitant]
     Indication: PNEUMONIA

REACTIONS (2)
  - AGRANULOCYTOSIS [None]
  - ASTHENIA [None]
